FAERS Safety Report 9991704 (Version 1)
Quarter: 2014Q1

REPORT INFORMATION
  Report Type: Spontaneous
  Country: GB (occurrence: GB)
  Receive Date: 20140310
  Receipt Date: 20140310
  Transmission Date: 20141002
  Serious: Yes (Hospitalization)
  Sender: FDA-Public Use
  Company Number: GB-TEVA-466535ISR

PATIENT
  Age: 61 Year
  Sex: Female
  Weight: 52 kg

DRUGS (3)
  1. OLANZAPINE [Suspect]
     Dosage: FROM 5MG DAILY TO 2.5MGS EVERY OTHER DAY TO 1.25MG EVERY OTHER DAY.
     Route: 048
  2. OLANZAPINE [Suspect]
     Dosage: FROM 5MG DAILY TO 2.5MGS EVERY OTHER DAY TO 1.25MG EVERY OTHER DAY.
     Route: 048
  3. OLANZAPINE [Suspect]
     Dosage: 5MG DAILY TO 2.5MGS EVERY OTHER DAY.
     Route: 048
     Dates: start: 200610

REACTIONS (5)
  - Withdrawal syndrome [Not Recovered/Not Resolved]
  - Anxiety [Not Recovered/Not Resolved]
  - Nausea [Not Recovered/Not Resolved]
  - Vomiting [Not Recovered/Not Resolved]
  - Insomnia [Not Recovered/Not Resolved]
